FAERS Safety Report 7462806-4 (Version None)
Quarter: 2011Q2

REPORT INFORMATION
  Report Type: 
  Country: None (occurrence: None)
  Receive Date: 20110506
  Receipt Date: 20110421
  Transmission Date: 20111010
  Serious: Yes (Other)
  Sender: FDA-Public Use
  Company Number: US-JNJFOC-20110410248

PATIENT
  Age: 68 Year
  Sex: Female
  Weight: 66.23 kg

DRUGS (2)
  1. MINOXIDIL [Suspect]
     Route: 061
  2. MINOXIDIL [Suspect]
     Indication: HAIR GROWTH ABNORMAL
     Route: 061

REACTIONS (1)
  - ATRIAL FIBRILLATION [None]
